FAERS Safety Report 10684628 (Version 3)
Quarter: 2025Q4

REPORT INFORMATION
  Report Type: Report from Study
  Country: EU (occurrence: EU)
  Receive Date: 20141231
  Receipt Date: 20251125
  Transmission Date: 20260118
  Serious: Yes (Hospitalization, Disabling)
  Sender: SANOFI AVENTIS
  Company Number: EU-SA-2014SA176360

PATIENT
  Age: 70 Year
  Sex: Male

DRUGS (19)
  1. DOCETAXEL [Suspect]
     Active Substance: DOCETAXEL
     Indication: Non-small cell lung cancer
     Dosage: 143.51 MG,Q3W (DATE OF MOST RECENT DOSE PRIOR TO AE)
     Route: 042
     Dates: start: 20140725, end: 20140725
  2. NEBIVOLOL [Concomitant]
     Active Substance: NEBIVOLOL
     Indication: Hypertension
     Dosage: 2.5 MG,UNK
     Route: 048
     Dates: start: 2005
  3. RAMIPRIL [Concomitant]
     Active Substance: RAMIPRIL
     Indication: Hypertension
     Dosage: 1.25 MG
     Route: 048
     Dates: start: 2005, end: 20140805
  4. PENTOXIFYLLINE [Concomitant]
     Active Substance: PENTOXIFYLLINE
     Dosage: 600 MG
     Route: 048
     Dates: start: 2000
  5. PANTOPRAZOLE [Concomitant]
     Active Substance: PANTOPRAZOLE
     Indication: Peptic ulcer
     Dosage: 20 MG
     Route: 048
     Dates: start: 2009, end: 20140803
  6. ATORVASTATIN [Concomitant]
     Active Substance: ATORVASTATIN
     Indication: Hyperlipidaemia
     Dosage: 40 MG
     Route: 048
     Dates: start: 2013
  7. TIMONACIC [Concomitant]
     Active Substance: TIMONACIC
     Dosage: 100 MG
     Route: 048
     Dates: start: 2011
  8. FORMOTEROL FUMARATE [Concomitant]
     Active Substance: FORMOTEROL FUMARATE
     Indication: Respiratory disorder
     Dosage: 12 UG
     Dates: start: 2013
  9. FORMOTEROL FUMARATE [Concomitant]
     Active Substance: FORMOTEROL FUMARATE
     Indication: Dyspnoea
  10. IPRATROPIUM BROMIDE [Concomitant]
     Active Substance: IPRATROPIUM BROMIDE
     Indication: Respiratory disorder
     Dosage: 160 UG
     Dates: start: 2013
  11. IPRATROPIUM BROMIDE [Concomitant]
     Active Substance: IPRATROPIUM BROMIDE
     Indication: Dyspnoea
  12. AMBROXOL HYDROCHLORIDE [Concomitant]
     Active Substance: AMBROXOL HYDROCHLORIDE
     Indication: Respiratory disorder
     Dosage: 15 MG
     Dates: start: 20140716, end: 20140722
  13. AMBROXOL HYDROCHLORIDE [Concomitant]
     Active Substance: AMBROXOL HYDROCHLORIDE
     Indication: Cough
  14. CIPROFLOXACIN HYDROCHLORIDE [Concomitant]
     Active Substance: CIPROFLOXACIN HYDROCHLORIDE
     Dosage: 500 MG
     Route: 048
     Dates: start: 20140716, end: 20140722
  15. FRUCTOSE [Concomitant]
     Active Substance: FRUCTOSE
     Dosage: 1 DF
     Route: 048
     Dates: start: 20140716, end: 20140722
  16. ENOXAPARIN SODIUM [Concomitant]
     Active Substance: ENOXAPARIN SODIUM
     Dosage: 60 MG
     Route: 058
     Dates: start: 20140708, end: 20140806
  17. ENOXAPARIN SODIUM [Concomitant]
     Active Substance: ENOXAPARIN SODIUM
     Dosage: 80 MG
     Route: 058
     Dates: start: 20131216, end: 20140707
  18. POTASSIUM [Concomitant]
     Active Substance: POTASSIUM
     Dosage: 54 MG
     Route: 048
  19. MAGNESIUM [Concomitant]
     Active Substance: MAGNESIUM
     Dosage: 250 MG
     Route: 048

REACTIONS (2)
  - Oesophageal varices haemorrhage [Recovered/Resolved]
  - Bronchitis [Recovered/Resolved]

NARRATIVE: CASE EVENT DATE: 20140801
